FAERS Safety Report 19832929 (Version 3)
Quarter: 2022Q1

REPORT INFORMATION
  Report Type: Other
  Country: GB (occurrence: GB)
  Receive Date: 20210915
  Receipt Date: 20220215
  Transmission Date: 20220423
  Serious: Yes (Hospitalization, Other)
  Sender: FDA-Public Use
  Company Number: None

PATIENT
  Age: 36 Year
  Sex: Male
  Weight: 84 kg

DRUGS (2)
  1. IBUPROFEN [Suspect]
     Active Substance: IBUPROFEN
     Indication: Product used for unknown indication
     Dosage: UNK, BID (STARTED ON 12 AUG 2021)
     Route: 065
     Dates: end: 20210817
  2. PFIZER-BIONTECH COVID-19 VACCINE [Suspect]
     Active Substance: TOZINAMERAN
     Indication: COVID-19 immunisation
     Dosage: UNK, DOSE 1
     Route: 065
     Dates: start: 20210525, end: 20210525

REACTIONS (8)
  - Pericarditis [Recovered/Resolved]
  - Condition aggravated [Recovered/Resolved]
  - Chest pain [Recovered/Resolved]
  - Condition aggravated [Recovered/Resolved]
  - Burning sensation [Recovered/Resolved]
  - Burning sensation [Recovered/Resolved]
  - Cardiac discomfort [Recovered/Resolved]
  - Drug ineffective [Unknown]

NARRATIVE: CASE EVENT DATE: 20210801
